FAERS Safety Report 17965332 (Version 5)
Quarter: 2020Q3

REPORT INFORMATION
  Report Type: Spontaneous
  Country: US (occurrence: US)
  Receive Date: 20200701
  Receipt Date: 20200903
  Transmission Date: 20201103
  Serious: Yes (Death, Hospitalization)
  Sender: FDA-Public Use
  Company Number: US-ELI_LILLY_AND_COMPANY-US202006009990

PATIENT
  Age: 13 Year
  Sex: Male
  Weight: 35.2 kg

DRUGS (5)
  1. TYVASO [Suspect]
     Active Substance: TREPROSTINIL
     Dosage: 3?9 BREATHS QID
     Route: 055
  2. TYVASO [Suspect]
     Active Substance: TREPROSTINIL
     Dosage: 3?9 BREATHS, QID
     Route: 055
  3. ADCIRCA [Suspect]
     Active Substance: TADALAFIL
     Indication: PULMONARY ARTERIAL HYPERTENSION
     Dosage: UNK UNK, UNKNOWN
     Route: 065
     Dates: end: 202007
  4. ESBRIET [Concomitant]
     Active Substance: PIRFENIDONE
     Indication: PRODUCT USED FOR UNKNOWN INDICATION
     Dosage: UNK, UNKNOWN
     Route: 065
  5. TYVASO [Suspect]
     Active Substance: TREPROSTINIL
     Indication: PULMONARY ARTERIAL HYPERTENSION
     Dosage: 18?54UG, QID
     Route: 055
     Dates: start: 20190829

REACTIONS (7)
  - Lung disorder [Fatal]
  - Malaise [Not Recovered/Not Resolved]
  - Cardiac disorder [Fatal]
  - Vomiting [Unknown]
  - Cardiac failure [Unknown]
  - Diarrhoea [Unknown]
  - Pulmonary arterial pressure decreased [Unknown]

NARRATIVE: CASE EVENT DATE: 20200617
